FAERS Safety Report 5161385-4 (Version None)
Quarter: 2006Q4

REPORT INFORMATION
  Report Type: 
  Country: None (occurrence: None)
  Receive Date: 20061130
  Receipt Date: 20061121
  Transmission Date: 20070319
  Serious: Yes (Other)
  Sender: FDA-Public Use
  Company Number: CH-ROCHE-472245

PATIENT
  Age: 23 Year
  Sex: Female

DRUGS (1)
  1. ROACCUTAN [Suspect]
     Indication: ACNE
     Dosage: REPORTED AS TAKEN UP TO THE DAY OF DELIVERY
     Route: 065

REACTIONS (4)
  - ABORTION INDUCED [None]
  - CONGENITAL ANOMALY [None]
  - DRUG EXPOSURE DURING PREGNANCY [None]
  - LUNG DISORDER [None]
